FAERS Safety Report 21361622 (Version 3)
Quarter: 2022Q4

REPORT INFORMATION
  Report Type: Report from Study
  Country: DE (occurrence: DE)
  Receive Date: 20220921
  Receipt Date: 20221128
  Transmission Date: 20230112
  Serious: Yes (Hospitalization, Other)
  Sender: FDA-Public Use
  Company Number: DE-BRISTOL-MYERS SQUIBB COMPANY-2022-109089

PATIENT
  Age: 58 Year
  Sex: Male
  Weight: 111 kg

DRUGS (2)
  1. OPDIVO [Suspect]
     Active Substance: NIVOLUMAB
     Indication: Renal cell carcinoma
     Dosage: 3MG/KG BODY WEIGHT
     Route: 042
     Dates: start: 20190418
  2. YERVOY [Suspect]
     Active Substance: IPILIMUMAB
     Indication: Renal cell carcinoma
     Dosage: 1MG/KG BODY WEIGHT
     Route: 042
     Dates: start: 20190418

REACTIONS (2)
  - Hypopituitarism [Not Recovered/Not Resolved]
  - Glucocorticoid deficiency [Unknown]

NARRATIVE: CASE EVENT DATE: 20191002
